FAERS Safety Report 17854349 (Version 2)
Quarter: 2020Q2

REPORT INFORMATION
  Report Type: Spontaneous
  Country: FR (occurrence: FR)
  Receive Date: 20200603
  Receipt Date: 20200615
  Transmission Date: 20200714
  Serious: Yes (Hospitalization, Other)
  Sender: FDA-Public Use
  Company Number: FR-LUPIN PHARMACEUTICALS INC.-2020-02631

PATIENT
  Age: 16 Month

DRUGS (5)
  1. KEPPRA [Concomitant]
     Active Substance: LEVETIRACETAM
     Indication: EPILEPSY
     Dosage: UNK
     Route: 065
  2. RIVOTRIL [Concomitant]
     Active Substance: CLONAZEPAM
     Indication: EPILEPSY
     Dosage: UNK
     Route: 065
  3. LAMOTRIGINE. [Suspect]
     Active Substance: LAMOTRIGINE
     Dosage: UNK
     Route: 048
  4. DEPAKINE [VALPROIC ACID] [Concomitant]
     Active Substance: VALPROIC ACID
     Indication: EPILEPSY
     Dosage: UNK
     Route: 065
  5. LAMOTRIGINE. [Suspect]
     Active Substance: LAMOTRIGINE
     Indication: EPILEPSY
     Dosage: UNK
     Route: 064
     Dates: end: 201409

REACTIONS (17)
  - Weight gain poor [Recovering/Resolving]
  - Drug abuse [Unknown]
  - Seizure [Unknown]
  - Ataxia [Unknown]
  - Gastroenteritis [Recovering/Resolving]
  - Factitious disorder [Unknown]
  - Paradoxical drug reaction [Unknown]
  - Drug level increased [Unknown]
  - Overdose [Unknown]
  - Dyspnoea [Unknown]
  - Generalised tonic-clonic seizure [Unknown]
  - Infection [Unknown]
  - Foetal exposure during pregnancy [Unknown]
  - Tremor [Recovered/Resolved]
  - Gastrointestinal disorder [Unknown]
  - Toxicity to various agents [Unknown]
  - Myoclonus [Unknown]

NARRATIVE: CASE EVENT DATE: 2014
